FAERS Safety Report 9413589 (Version 2)
Quarter: 2013Q3

REPORT INFORMATION
  Report Type: Report from Study
  Country: US (occurrence: US)
  Receive Date: 20130722
  Receipt Date: 20130821
  Transmission Date: 20140515
  Serious: Yes (Hospitalization, Other)
  Sender: FDA-Public Use
  Company Number: US-ABBOTT-13P-163-1120108-00

PATIENT
  Age: 30 Year
  Sex: Female

DRUGS (11)
  1. LUPRON DEPOT [Suspect]
     Indication: ENDOMETRIOSIS
     Dates: start: 20130709
  2. LUPRON DEPOT [Suspect]
     Dates: start: 201003, end: 201003
  3. LUPRON DEPOT [Suspect]
     Dates: start: 2009
  4. LUPRON DEPOT [Suspect]
     Dates: start: 2008
  5. LUPRON DEPOT [Suspect]
     Dates: start: 2006
  6. LUPRON DEPOT [Suspect]
     Indication: ENDOMETRIOSIS
     Dates: start: 20130613, end: 20130709
  7. MULTIVITAMIN [Concomitant]
     Indication: VITAMIN SUPPLEMENTATION
     Dosage: ONCE A DAY
  8. CALCIUM [Concomitant]
     Indication: MINERAL SUPPLEMENTATION
     Dosage: ONCE DAILY
  9. MAGNESIUM [Concomitant]
     Indication: MINERAL SUPPLEMENTATION
     Dosage: ONCE DAILY
  10. POTASSIUM [Concomitant]
     Indication: MINERAL SUPPLEMENTATION
     Dosage: ONCE DAILY
  11. NORETHINDRONE ACETATE [Concomitant]
     Indication: PRODUCT USED FOR UNKNOWN INDICATION
     Dates: start: 20130724

REACTIONS (20)
  - Clostridium difficile infection [Not Recovered/Not Resolved]
  - Endometriosis [Recovering/Resolving]
  - Hot flush [Not Recovered/Not Resolved]
  - Drug ineffective [Not Recovered/Not Resolved]
  - Pelvic pain [Recovering/Resolving]
  - Metrorrhagia [Not Recovered/Not Resolved]
  - Polyp [Recovered/Resolved]
  - Metrorrhagia [Not Recovered/Not Resolved]
  - Uterine pain [Not Recovered/Not Resolved]
  - Dysuria [Not Recovered/Not Resolved]
  - Abdominal pain [Not Recovered/Not Resolved]
  - Ligament sprain [Unknown]
  - Constipation [Recovering/Resolving]
  - Diarrhoea [Unknown]
  - Abdominal pain [Recovered/Resolved]
  - Proctalgia [Recovered/Resolved]
  - Dyspareunia [Recovered/Resolved]
  - Coeliac disease [Unknown]
  - Migraine [Unknown]
  - Vaginal haemorrhage [Unknown]
